FAERS Safety Report 6186244-X (Version None)
Quarter: 2009Q2

REPORT INFORMATION
  Report Type: 
  Country: None (occurrence: None)
  Receive Date: 20090511
  Receipt Date: 20090501
  Transmission Date: 20091009
  Serious: Yes (Other)
  Sender: FDA-Public Use
  Company Number: PHHY2009CA16880

PATIENT
  Sex: Female

DRUGS (1)
  1. GENTEAL DROPS (NVO) [Suspect]
     Indication: DRY EYE
     Dosage: 1 DROP/DAY IN EACH EYE
     Route: 047
     Dates: start: 20090402

REACTIONS (3)
  - ABNORMAL SENSATION IN EYE [None]
  - ERYTHEMA [None]
  - OCULAR HYPERAEMIA [None]
